FAERS Safety Report 16305975 (Version 1)
Quarter: 2019Q2

REPORT INFORMATION
  Report Type: Spontaneous
  Country: DE (occurrence: DE)
  Receive Date: 20190513
  Receipt Date: 20190513
  Transmission Date: 20190711
  Serious: Yes (Hospitalization, Other)
  Sender: FDA-Public Use
  Company Number: DE-MYLANLABS-2019M1044243

PATIENT
  Age: 27 Year
  Sex: Male
  Weight: 78 kg

DRUGS (4)
  1. LEPONEX [Suspect]
     Active Substance: CLOZAPINE
     Dosage: 300 MILLIGRAM, QD
     Route: 048
     Dates: start: 200310, end: 2003
  2. LEPONEX [Suspect]
     Active Substance: CLOZAPINE
     Dosage: UP TO 600MG/DAY
     Route: 048
     Dates: start: 200312, end: 200312
  3. LEPONEX [Suspect]
     Active Substance: CLOZAPINE
     Indication: SCHIZOPHRENIA
     Dosage: 300 MILLIGRAM, QD, DOSAGE GRADUALLY INCREASED
     Route: 048
     Dates: start: 200310, end: 200310
  4. HALDOL [Suspect]
     Active Substance: HALOPERIDOL
     Indication: SCHIZOPHRENIA
     Dosage: 10 MG/DAY
     Route: 048
     Dates: start: 200308, end: 200311

REACTIONS (4)
  - Drug level above therapeutic [Recovered/Resolved]
  - Fall [Recovered/Resolved]
  - Electroencephalogram abnormal [Recovered/Resolved]
  - Myoclonus [Recovered/Resolved]

NARRATIVE: CASE EVENT DATE: 200310
